FAERS Safety Report 18101673 (Version 2)
Quarter: 2020Q3

REPORT INFORMATION
  Report Type: Spontaneous
  Country: GB (occurrence: GB)
  Receive Date: 20200801
  Receipt Date: 20200831
  Transmission Date: 20201103
  Serious: Yes (Other)
  Sender: FDA-Public Use
  Company Number: GB-ASCEND THERAPEUTICS US, LLC-2088040

PATIENT
  Age: 50 Year
  Sex: Female
  Weight: 57 kg

DRUGS (3)
  1. ESTROGEL [Suspect]
     Active Substance: ESTRADIOL
     Indication: HORMONE REPLACEMENT THERAPY
     Route: 003
     Dates: start: 20200501
  2. ESTROGEL [Suspect]
     Active Substance: ESTRADIOL
  3. OESTRODOSE (ESTRADIOL)?INDICATION FOR USE: HORMONE REPLACEMENT THERAPY [Suspect]
     Active Substance: ESTRADIOL
     Route: 003
     Dates: start: 20200501

REACTIONS (4)
  - Product substitution issue [Unknown]
  - Anxiety [Not Recovered/Not Resolved]
  - Menopausal symptoms [Unknown]
  - Night sweats [Not Recovered/Not Resolved]

NARRATIVE: CASE EVENT DATE: 20200514
